FAERS Safety Report 17503183 (Version 1)
Quarter: 2020Q1

REPORT INFORMATION
  Report Type: Spontaneous
  Country: US (occurrence: US)
  Receive Date: 20200305
  Receipt Date: 20200305
  Transmission Date: 20200409
  Serious: Yes (Death)
  Sender: FDA-Public Use
  Company Number: US-AKRON, INC.-2081310

PATIENT
  Age: 74 Year
  Sex: Female

DRUGS (1)
  1. LABETALOL HCI INJECTION [Suspect]
     Active Substance: LABETALOL HYDROCHLORIDE

REACTIONS (5)
  - Hydrocephalus [Fatal]
  - Pulseless electrical activity [Fatal]
  - Pneumonia [Fatal]
  - Death [Fatal]
  - Respiratory failure [Fatal]
